FAERS Safety Report 8474635-3 (Version None)
Quarter: 2012Q2

REPORT INFORMATION
  Report Type: 
  Country: None (occurrence: None)
  Receive Date: 20120621
  Receipt Date: 20120606
  Transmission Date: 20120825
  Serious: Yes (Death)
  Sender: FDA-Public Use
  Company Number: 2012PV000036

PATIENT
  Age: 55 Year
  Sex: Male

DRUGS (8)
  1. FOLIC ACID [Suspect]
     Indication: METASTASES TO MENINGES
     Dosage: 200 MG;IV
     Route: 042
     Dates: start: 20090703, end: 20090705
  2. METHYLPREDNISOLONE [Suspect]
     Indication: METASTASES TO MENINGES
     Dosage: 100 MG;IV
     Route: 042
     Dates: start: 20090702, end: 20090705
  3. CYCLOPHOSPHAMIDE [Suspect]
     Indication: METASTASES TO MENINGES
     Dosage: 460 MG;IV
     Route: 042
     Dates: start: 20090703, end: 20090705
  4. RITUXIMAB (RITUXIMAB) [Suspect]
     Indication: METASTASES TO MENINGES
     Dosage: 693 MG;IV
     Route: 042
     Dates: start: 20090701, end: 20090701
  5. METHOTREXATE SODIUM [Suspect]
     Indication: METASTASES TO MENINGES
     Dosage: 5500 MG;IV
     Route: 042
     Dates: start: 20090702, end: 20090702
  6. ADRIAMYCIN PFS [Suspect]
     Indication: METASTASES TO MENINGES
     Dosage: 110 MG;IV
     Route: 042
     Dates: start: 20090703, end: 20090703
  7. VINCRISTINE [Suspect]
     Indication: METASTASES TO MENINGES
     Dosage: 2 MG;IV
     Route: 042
     Dates: start: 20090702, end: 20090702
  8. DEPOCYT [Suspect]
     Indication: METASTASES TO MENINGES
     Dosage: 50 MG;INTH
     Route: 037
     Dates: start: 20090703, end: 20090703

REACTIONS (4)
  - LEUKOPENIA [None]
  - APLASIA [None]
  - TOXICITY TO VARIOUS AGENTS [None]
  - BONE MARROW FAILURE [None]
